FAERS Safety Report 8209868-4 (Version None)
Quarter: 2012Q1

REPORT INFORMATION
  Report Type: 
  Country: None (occurrence: None)
  Receive Date: 20120314
  Receipt Date: 20120214
  Transmission Date: 20120608
  Serious: No
  Sender: FDA-Public Use
  Company Number: US-ASTRAZENECA-2009SE24330

PATIENT
  Age: 63 Year
  Sex: Female

DRUGS (4)
  1. TOPROL-XL [Suspect]
     Dosage: MORNING
     Route: 048
  2. ASPIRIN [Concomitant]
  3. TOPROL-XL [Suspect]
     Route: 048
  4. TOPROL-XL [Suspect]
     Route: 048

REACTIONS (7)
  - POLLAKIURIA [None]
  - MENOPAUSE [None]
  - TREMOR [None]
  - HOT FLUSH [None]
  - MUSCLE SPASMS [None]
  - CARDIAC FLUTTER [None]
  - FATIGUE [None]
